FAERS Safety Report 20155477 (Version 1)
Quarter: 2021Q4

REPORT INFORMATION
  Report Type: Spontaneous
  Country: CN (occurrence: None)
  Receive Date: 20211207
  Receipt Date: 20211207
  Transmission Date: 20220304
  Serious: Yes (Hospitalization)
  Sender: FDA-Public Use
  Company Number: 2021A853624

PATIENT
  Age: 80 Year

DRUGS (1)
  1. IRESSA [Suspect]
     Active Substance: GEFITINIB
     Indication: Lung neoplasm malignant
     Dosage: UNKNOWN
     Route: 048
     Dates: start: 202005

REACTIONS (2)
  - Back pain [Unknown]
  - Drug resistance [Unknown]
